FAERS Safety Report 25118689 (Version 2)
Quarter: 2025Q1

REPORT INFORMATION
  Report Type: Spontaneous
  Country: IN (occurrence: IN)
  Receive Date: 20250325
  Receipt Date: 20250328
  Transmission Date: 20250409
  Serious: Yes (Other)
  Sender: SANDOZ
  Company Number: IN-SANDOZ-SDZ2024IN016784

PATIENT
  Sex: Male

DRUGS (2)
  1. TACROLIMUS [Suspect]
     Active Substance: TACROLIMUS
     Dosage: 0.5 MG, QD
     Route: 048
  2. TACROLIMUS [Suspect]
     Active Substance: TACROLIMUS
     Indication: Liver transplant
     Dosage: 0.5 MG, BID
     Route: 048

REACTIONS (10)
  - Hypoglycaemic seizure [Unknown]
  - Incisional hernia [Unknown]
  - Cerebrovascular accident [Unknown]
  - Cerebral infarction [Unknown]
  - Pneumonia [Unknown]
  - Pleural effusion [Unknown]
  - Infectious pleural effusion [Recovered/Resolved]
  - Hyponatraemia [Unknown]
  - Blood potassium increased [Unknown]
  - Blood magnesium decreased [Unknown]
